FAERS Safety Report 7512323-8 (Version None)
Quarter: 2011Q2

REPORT INFORMATION
  Report Type: 
  Country: None (occurrence: None)
  Receive Date: 20110520
  Receipt Date: 20110503
  Transmission Date: 20111010
  Serious: Yes (Hospitalization)
  Sender: FDA-Public Use
  Company Number: DKLU1070662

PATIENT
  Sex: Female

DRUGS (5)
  1. PREDNISOLONE [Concomitant]
  2. ADRENOCORTICOTROPHIC HORMONE (CORTICOTROPIN) [Concomitant]
  3. SABRIL [Suspect]
     Indication: INFANTILE SPASMS
     Dosage: 200 MG MILLIGRAM(S), 2  IN 1 D, ORAL
     Route: 048
     Dates: start: 20110325, end: 20110407
  4. AUGMENTIN (AUGMENTIN /00756801/) [Concomitant]
  5. TRIMETHOPRIM [Concomitant]

REACTIONS (1)
  - STEVENS-JOHNSON SYNDROME [None]
